FAERS Safety Report 6825429-3 (Version None)
Quarter: 2010Q3

REPORT INFORMATION
  Report Type: 
  Country: None (occurrence: None)
  Receive Date: 20100708
  Receipt Date: 20061230
  Transmission Date: 20110219
  Serious: No
  Sender: FDA-Public Use
  Company Number: US-PFIZER INC-2007001751

PATIENT
  Sex: Male
  Weight: 95.25 kg

DRUGS (2)
  1. CHANTIX [Suspect]
     Indication: SMOKING CESSATION THERAPY
     Dates: start: 20061225
  2. EFFEXOR [Concomitant]
     Indication: DEPRESSION

REACTIONS (1)
  - NIGHTMARE [None]
